FAERS Safety Report 7606877-0 (Version None)
Quarter: 2011Q3

REPORT INFORMATION
  Report Type: 
  Country: None (occurrence: None)
  Receive Date: 20110713
  Receipt Date: 20110705
  Transmission Date: 20111222
  Serious: Yes (Hospitalization)
  Sender: FDA-Public Use
  Company Number: IT-GLAXOSMITHKLINE-B0729919A

PATIENT
  Sex: Male

DRUGS (4)
  1. APROVEL [Concomitant]
     Indication: HYPERTENSION
     Route: 065
  2. SINEMET [Suspect]
     Indication: PARKINSON'S DISEASE
     Dosage: 1UNIT PER DAY
     Route: 048
     Dates: start: 20110607, end: 20110622
  3. PROPAFENONE HCL [Suspect]
     Indication: VENTRICULAR ARRHYTHMIA
     Dosage: 225MG PER DAY
     Route: 048
     Dates: start: 20110622, end: 20110622
  4. ASPIRIN [Concomitant]
     Dosage: 100MG PER DAY
     Route: 048

REACTIONS (8)
  - ATRIOVENTRICULAR BLOCK FIRST DEGREE [None]
  - VISION BLURRED [None]
  - ELECTROCARDIOGRAM PQ INTERVAL PROLONGED [None]
  - SINUS BRADYCARDIA [None]
  - HYPERHIDROSIS [None]
  - HYPOTENSION [None]
  - LOSS OF CONSCIOUSNESS [None]
  - CONDUCTION DISORDER [None]
